FAERS Safety Report 9551554 (Version 1)
Quarter: 2013Q3

REPORT INFORMATION
  Report Type: Spontaneous
  Country: US (occurrence: None)
  Receive Date: 20130923
  Receipt Date: 20130923
  Transmission Date: 20140515
  Serious: Yes (Hospitalization, Other)
  Sender: FDA-Public Use
  Company Number: None

PATIENT
  Sex: Male

DRUGS (1)
  1. ZELBORAF [Suspect]
     Route: 048
     Dates: start: 20130725, end: 20130904

REACTIONS (3)
  - Dehydration [None]
  - Renal failure [None]
  - Pneumonia [None]
